FAERS Safety Report 17277443 (Version 5)
Quarter: 2020Q2

REPORT INFORMATION
  Report Type: Report from Study
  Country: US (occurrence: US)
  Receive Date: 20200116
  Receipt Date: 20200527
  Transmission Date: 20200713
  Serious: Yes (Other)
  Sender: FDA-Public Use
  Company Number: NVSC2020US007831

PATIENT
  Age: 60 Year
  Sex: Male

DRUGS (1)
  1. MAYZENT [Suspect]
     Active Substance: SIPONIMOD
     Indication: MULTIPLE SCLEROSIS
     Dosage: 2 MG, QD
     Route: 048
     Dates: start: 20190920

REACTIONS (11)
  - Memory impairment [Unknown]
  - Asthenia [Unknown]
  - Dislocation of vertebra [Unknown]
  - Nausea [Unknown]
  - Pain in extremity [Unknown]
  - Seasonal allergy [Unknown]
  - Dizziness [Unknown]
  - Ear infection [Unknown]
  - Back pain [Unknown]
  - Spondylitis [Unknown]
  - Malaise [Unknown]

NARRATIVE: CASE EVENT DATE: 20191129
